FAERS Safety Report 7783628-0 (Version None)
Quarter: 2011Q3

REPORT INFORMATION
  Report Type: 
  Country: None (occurrence: None)
  Receive Date: 20110901
  Receipt Date: 20100831
  Transmission Date: 20111222
  Serious: Yes (Disabling, Other)
  Sender: FDA-Public Use
  Company Number: 210651USA

PATIENT
  Sex: Female

DRUGS (6)
  1. METOCLOPRAMIDE [Suspect]
     Indication: RADIATION INJURY
     Dates: start: 19930101, end: 20050101
  2. METOCLOPRAMIDE [Suspect]
     Indication: OESOPHAGEAL INJURY
     Dates: start: 19930101, end: 20050101
  3. METOCLOPRAMIDE [Suspect]
     Indication: GASTROINTESTINAL DISORDER
     Dates: start: 19930101, end: 20050101
  4. METOCLOPRAMIDE [Suspect]
     Indication: RADIATION INJURY
     Dates: start: 19910101, end: 20020101
  5. METOCLOPRAMIDE [Suspect]
     Indication: OESOPHAGEAL INJURY
     Dates: start: 19910101, end: 20020101
  6. METOCLOPRAMIDE [Suspect]
     Indication: GASTROINTESTINAL DISORDER
     Dates: start: 19910101, end: 20020101

REACTIONS (2)
  - DYSKINESIA [None]
  - TARDIVE DYSKINESIA [None]
